FAERS Safety Report 11854235 (Version 1)
Quarter: 2015Q4

REPORT INFORMATION
  Report Type: Spontaneous
  Country: FR (occurrence: FR)
  Receive Date: 20151220
  Receipt Date: 20151220
  Transmission Date: 20160305
  Serious: Yes (Hospitalization)
  Sender: FDA-Public Use
  Company Number: FR-009507513-1512FRA006050

PATIENT
  Age: 31 Year
  Sex: Female

DRUGS (3)
  1. FOLLITROPIN BETA [Suspect]
     Active Substance: FOLLITROPIN
     Dosage: 125 IU, QD
     Route: 058
     Dates: start: 20150226, end: 20150304
  2. ORGALUTRAN [Suspect]
     Active Substance: GANIRELIX ACETATE
     Dosage: STRENGTH: 0.25MG/0.5ML, 1 DF, QD
     Route: 058
     Dates: start: 201503, end: 2015
  3. OVITRELLE [Suspect]
     Active Substance: CHORIOGONADOTROPIN ALFA
     Dosage: 1 DF, ONCE
     Route: 058
     Dates: start: 20150305

REACTIONS (1)
  - Peritoneal haemorrhage [Recovered/Resolved]
